FAERS Safety Report 8011035 (Version 4)
Quarter: 2015Q4

REPORT INFORMATION
  Report Type: Spontaneous
  Country: US (occurrence: US)
  Receive Date: 20110627
  Receipt Date: 20151202
  Transmission Date: 20160305
  Serious: Yes (Hospitalization, Other)
  Sender: FDA-Public Use
  Company Number: US-BAYER-2011-052568

PATIENT
  Age: 43 Year
  Sex: Female
  Weight: 88.44 kg

DRUGS (4)
  1. YASMIN [Suspect]
     Active Substance: DROSPIRENONE\ETHINYL ESTRADIOL
     Dosage: UNK
     Dates: start: 2007, end: 2008
  2. OXYCODONE/APAP [Concomitant]
     Active Substance: ACETAMINOPHEN\OXYCODONE HYDROCHLORIDE
  3. OCELLA [Suspect]
     Active Substance: DROSPIRENONE\ETHINYL ESTRADIOL
     Dosage: UNK
     Dates: start: 2007, end: 2008
  4. LORAZEPAM. [Concomitant]
     Active Substance: LORAZEPAM
     Dosage: 1 MG, UNK

REACTIONS (3)
  - Pain [None]
  - Embolism arterial [None]
  - Myocardial infarction [None]

NARRATIVE: CASE EVENT DATE: 20091231
